FAERS Safety Report 8443914-8 (Version None)
Quarter: 2012Q2

REPORT INFORMATION
  Report Type: 
  Country: None (occurrence: None)
  Receive Date: 20120618
  Receipt Date: 20120613
  Transmission Date: 20120825
  Serious: Yes (Death, Hospitalization)
  Sender: FDA-Public Use
  Company Number: US-TEVA-2011005520

PATIENT
  Sex: Male
  Weight: 65 kg

DRUGS (13)
  1. COLACE [Concomitant]
     Dates: start: 20110819
  2. FLUCONAZOLE [Concomitant]
     Dates: start: 20110816
  3. OXYCODONE HCL [Concomitant]
     Dates: start: 20110606
  4. TREANDA [Suspect]
     Indication: MULTIPLE MYELOMA
     Route: 041
     Dates: start: 20110813, end: 20110814
  5. GABAPENTIN [Concomitant]
     Dates: start: 20110426
  6. ASPIRIN [Concomitant]
     Dates: start: 20110813
  7. TREANDA [Suspect]
     Route: 041
     Dates: start: 20110912, end: 20110913
  8. FAMOTIDINE [Concomitant]
     Dates: start: 20111009
  9. VALACYCLOVIR HYDROCHLORIDE [Concomitant]
     Dates: start: 20110816
  10. DEXAMETHASONE [Suspect]
     Indication: MULTIPLE MYELOMA
     Dates: start: 20110813
  11. ALLOPURINOL [Concomitant]
     Dates: start: 20110815
  12. LENALIDOMIDE [Suspect]
     Indication: MULTIPLE MYELOMA
     Dates: start: 20110813, end: 20110920
  13. PRAVACHOL [Concomitant]
     Dates: start: 20110806

REACTIONS (2)
  - PNEUMONIA [None]
  - BACTERAEMIA [None]
